FAERS Safety Report 9486511 (Version 2)
Quarter: 2014Q1

REPORT INFORMATION
  Report Type: Spontaneous
  Country: US (occurrence: US)
  Receive Date: 20130829
  Receipt Date: 20140123
  Transmission Date: 20141002
  Serious: Yes (Hospitalization)
  Sender: FDA-Public Use
  Company Number: US-B.I. PHARMACEUTICALS,INC./RIDGEFIELD-2013-BI-26528BP

PATIENT
  Age: 76 Year
  Sex: Male
  Weight: 68.39 kg

DRUGS (10)
  1. PRADAXA [Suspect]
     Dates: start: 20110524, end: 20110917
  2. ATENOLOL [Concomitant]
     Dosage: 100 MG
  3. LIPITOR [Concomitant]
  4. LISINOPRIL [Concomitant]
     Dosage: 20 MG
  5. PLAVIX [Concomitant]
     Dosage: 75 MG
  6. MAGNESIUM [Concomitant]
  7. CENTRUM SILVER [Concomitant]
  8. OS-CAL [Concomitant]
  9. VICODIN [Concomitant]
  10. VALIUM [Concomitant]

REACTIONS (1)
  - Enterocolitis haemorrhagic [Unknown]
